FAERS Safety Report 10601199 (Version 1)
Quarter: 2014Q4

REPORT INFORMATION
  Report Type: Spontaneous
  Country: US (occurrence: US)
  Receive Date: 20141124
  Receipt Date: 20141124
  Transmission Date: 20150529
  Serious: Yes (Other)
  Sender: FDA-Public Use
  Company Number: US-EISAI MEDICAL RESEARCH-EC-2014-001800

PATIENT
  Age: 51 Year
  Sex: Female

DRUGS (1)
  1. RABEPRAZOLE [Suspect]
     Active Substance: RABEPRAZOLE
     Indication: GASTROOESOPHAGEAL REFLUX DISEASE
     Dosage: UNKNOWN
     Route: 048
     Dates: start: 2009, end: 2014

REACTIONS (3)
  - Hypomagnesaemia [Recovered/Resolved]
  - Electrocardiogram QT prolonged [Unknown]
  - Seizure [Unknown]

NARRATIVE: CASE EVENT DATE: 2014
